FAERS Safety Report 8305433-9 (Version None)
Quarter: 2012Q2

REPORT INFORMATION
  Report Type: 
  Country: None (occurrence: None)
  Receive Date: 20120423
  Receipt Date: 20120418
  Transmission Date: 20120825
  Serious: Yes (Other)
  Sender: FDA-Public Use
  Company Number: PHHY2012FR033233

PATIENT
  Age: 27 Year
  Sex: Female

DRUGS (1)
  1. TRAMADOL HYDROCHLORIDE [Suspect]
     Indication: MYALGIA
     Dosage: 2 DF, UNK
     Route: 048
     Dates: start: 20120219, end: 20120219

REACTIONS (7)
  - NAUSEA [None]
  - VOMITING [None]
  - FEELING DRUNK [None]
  - PHOTOPHOBIA [None]
  - VERTIGO [None]
  - DIZZINESS [None]
  - FATIGUE [None]
